FAERS Safety Report 18966184 (Version 2)
Quarter: 2021Q2

REPORT INFORMATION
  Report Type: Report from Study
  Country: None (occurrence: US)
  Receive Date: 20210304
  Receipt Date: 20210503
  Transmission Date: 20210717
  Serious: Yes (Hospitalization)
  Sender: FDA-Public Use
  Company Number: US-ABBVIE-21K-163-3797478-00

PATIENT
  Sex: Female
  Weight: 54.48 kg

DRUGS (2)
  1. OMEPRAZOLE. [Concomitant]
     Active Substance: OMEPRAZOLE
     Indication: GASTROOESOPHAGEAL REFLUX DISEASE
  2. HUMIRA [Suspect]
     Active Substance: ADALIMUMAB
     Indication: COLITIS ULCERATIVE
     Dosage: CITRATE FREE
     Route: 058
     Dates: start: 20201127

REACTIONS (5)
  - Gastrointestinal inflammation [Unknown]
  - Intestinal obstruction [Unknown]
  - Intestinal ulcer [Unknown]
  - Intestinal dilatation [Unknown]
  - Pain [Unknown]
